FAERS Safety Report 5202358-2 (Version None)
Quarter: 2006Q4

REPORT INFORMATION
  Report Type: 
  Country: None (occurrence: None)
  Receive Date: 20061012
  Receipt Date: 20060907
  Transmission Date: 20070319
  Serious: Yes (Hospitalization, Other)
  Sender: FDA-Public Use
  Company Number: 2006S1000097

PATIENT
  Age: 69 Year
  Sex: Male

DRUGS (5)
  1. CUBICIN [Suspect]
     Indication: ARTHRITIS INFECTIVE
     Dosage: 6 MG/KG; Q24H; IV
     Route: 042
     Dates: start: 20060414, end: 20060509
  2. CUBICIN [Suspect]
     Indication: STAPHYLOCOCCAL INFECTION
     Dosage: 6 MG/KG; Q24H; IV
     Route: 042
     Dates: start: 20060414, end: 20060509
  3. RIFAMPIN [Concomitant]
  4. WARFARIN SODIUM [Concomitant]
  5. VANCOMYCIN [Concomitant]

REACTIONS (7)
  - CHILLS [None]
  - COUGH [None]
  - HYPERSENSITIVITY [None]
  - INTERSTITIAL LUNG DISEASE [None]
  - LUNG INFILTRATION [None]
  - PYREXIA [None]
  - RED BLOOD CELL SEDIMENTATION RATE DECREASED [None]
